FAERS Safety Report 5349562-0 (Version None)
Quarter: 2007Q2

REPORT INFORMATION
  Report Type: 
  Country: None (occurrence: None)
  Receive Date: 20070607
  Receipt Date: 20070529
  Transmission Date: 20071010
  Serious: Yes (Hospitalization, Other)
  Sender: FDA-Public Use
  Company Number: AU-AVENTIS-200714790GDDC

PATIENT
  Age: 63 Year
  Sex: Female

DRUGS (7)
  1. LANTUS [Suspect]
     Dates: start: 20061101
  2. AUTOPEN INSULIN INJECTION PEN [Suspect]
  3. ENDEP [Concomitant]
     Dosage: DOSE: UNK
  4. PRESSIN [Concomitant]
     Dosage: DOSE: UNK
  5. VASOCARDOL [Concomitant]
     Dosage: DOSE: UNK
  6. ASTRIX [Concomitant]
     Dosage: DOSE: UNK
  7. ARANESP [Concomitant]
     Dosage: DOSE: UNK

REACTIONS (2)
  - CONDITION AGGRAVATED [None]
  - RENAL FAILURE [None]
